FAERS Safety Report 10313168 (Version 2)
Quarter: 2014Q3

REPORT INFORMATION
  Report Type: Report from Study
  Country: BR (occurrence: BR)
  Receive Date: 20140718
  Receipt Date: 20140815
  Transmission Date: 20150326
  Serious: Yes (Hospitalization, Other)
  Sender: FDA-Public Use
  Company Number: PHHY2014BR087964

PATIENT
  Age: 51 Year
  Sex: Female
  Weight: 100 kg

DRUGS (14)
  1. XOLAIR [Suspect]
     Active Substance: OMALIZUMAB
     Dosage: 2 DF, UNK
     Route: 058
     Dates: start: 201010
  2. AMITRIPTYLINE [Concomitant]
     Active Substance: AMITRIPTYLINE
     Indication: CHEST PAIN
     Dosage: 1 DF, QD (AT NIGHT)
  3. RIVOTRIL [Concomitant]
     Active Substance: CLONAZEPAM
     Indication: NERVOUSNESS
  4. PREDSIM [Concomitant]
     Active Substance: PREDNISOLONE
     Indication: INFLUENZA
  5. FORASEQ [Suspect]
     Active Substance: BUDESONIDE\FORMOTEROL FUMARATE
     Indication: ASTHMA
     Dosage: 1 DF, Q12H (1 CAPSULE OF TREATMENT 1 AND ONE CAPSULE OF TREATMENT 2, EVERY 12 HOURS)
     Route: 055
  6. GLIFAGE [Concomitant]
     Active Substance: METFORMIN HYDROCHLORIDE
     Indication: DIABETES MELLITUS
     Dosage: 1 DF, QD (AT NIGHT)
  7. CARVEDILOL. [Concomitant]
     Active Substance: CARVEDILOL
     Indication: CARDIAC DISORDER
     Dosage: 1 DF, BID (MORNING AND NIGHT)
  8. XOLAIR [Suspect]
     Active Substance: OMALIZUMAB
     Indication: ASTHMA
     Dosage: 2 DF, UNK
     Route: 058
     Dates: start: 201010
  9. ALENIA                             /01538101/ [Suspect]
     Active Substance: BUDESONIDE\FORMOTEROL FUMARATE
     Indication: ASTHMA
     Dosage: 1 DF, Q12H
     Route: 055
  10. RIVOTRIL [Concomitant]
     Active Substance: CLONAZEPAM
     Indication: AGITATION
     Dosage: 0.5 DF, QD (AT NIGHT)
  11. PREDSIM [Concomitant]
     Active Substance: PREDNISOLONE
     Indication: ASTHMA
     Dosage: 1 DF, QD (MORNING DURING 5 DAYS)
  12. FLUOXETINE [Concomitant]
     Active Substance: FLUOXETINE\FLUOXETINE HYDROCHLORIDE
     Indication: CHEST PAIN
  13. INDAPEN//INDAPAMIDE [Concomitant]
     Active Substance: INDAPAMIDE
     Indication: CARDIAC DISORDER
     Dosage: 1 DF, QD (IN MORNING)
  14. VASTAREL [Concomitant]
     Active Substance: TRIMETAZIDINE DIHYDROCHLORIDE
     Indication: CARDIAC DISORDER
     Dosage: UNK

REACTIONS (14)
  - Gastrointestinal infection [Unknown]
  - Oesophagitis [Unknown]
  - Swelling [Unknown]
  - Insomnia [Unknown]
  - Obesity [Unknown]
  - Cardiomegaly [Unknown]
  - Boredom [Unknown]
  - Fluid retention [Unknown]
  - Pulmonary hypertension [Recovered/Resolved]
  - Stress [Unknown]
  - Inguinal hernia [Unknown]
  - Overweight [Unknown]
  - Pruritus generalised [Unknown]
  - Pericardial effusion [Unknown]

NARRATIVE: CASE EVENT DATE: 2011
